FAERS Safety Report 5897111-0 (Version None)
Quarter: 2008Q3

REPORT INFORMATION
  Report Type: 
  Country: None (occurrence: None)
  Receive Date: 20080924
  Receipt Date: 20080603
  Transmission Date: 20090109
  Serious: Yes (Other)
  Sender: FDA-Public Use
  Company Number: US-ASTRAZENECA-2008UW11180

PATIENT
  Age: 26 Year
  Sex: Male

DRUGS (7)
  1. SEROQUEL [Suspect]
     Indication: BIPOLAR DISORDER
     Route: 048
  2. SEROQUEL [Suspect]
     Indication: INSOMNIA
     Route: 048
  3. SEROQUEL [Suspect]
     Route: 048
  4. SEROQUEL [Suspect]
     Route: 048
  5. LITHIUM CARBONATE [Concomitant]
  6. DEPAKOTE [Concomitant]
  7. TESTOSTERONE [Concomitant]

REACTIONS (1)
  - ACUTE PSYCHOSIS [None]
